FAERS Safety Report 18846384 (Version 3)
Quarter: 2021Q1

REPORT INFORMATION
  Report Type: Spontaneous
  Country: US (occurrence: US)
  Receive Date: 20210204
  Receipt Date: 20210330
  Transmission Date: 20210419
  Serious: No
  Sender: FDA-Public Use
  Company Number: US-PFIZER INC-2021079015

PATIENT
  Age: 66 Year
  Sex: Female
  Weight: 56.7 kg

DRUGS (3)
  1. MYRBETRIC [Concomitant]
     Active Substance: MIRABEGRON
     Indication: BLADDER DISORDER
     Dosage: 50 MG, DAILY (STARTED 3?4 YEARS BEFORE)
  2. BOTOX [Concomitant]
     Active Substance: ONABOTULINUMTOXINA
     Dosage: EVERY 3 MONTHS (FOR A YEAR) (STARTED A YEAR AGO)
  3. TOVIAZ [Suspect]
     Active Substance: FESOTERODINE FUMARATE
     Indication: BLADDER DISORDER
     Dosage: 4MG ONE TABLET DAILY BY MOUTH
     Route: 048
     Dates: start: 201911

REACTIONS (8)
  - Insomnia [Not Recovered/Not Resolved]
  - Dry mouth [Unknown]
  - Muscle spasms [Not Recovered/Not Resolved]
  - Thirst [Unknown]
  - Condition aggravated [Unknown]
  - Dental caries [Unknown]
  - Malaise [Unknown]
  - Weight fluctuation [Unknown]
